FAERS Safety Report 22775146 (Version 2)
Quarter: 2023Q4

REPORT INFORMATION
  Report Type: Spontaneous
  Country: US (occurrence: US)
  Receive Date: 20230802
  Receipt Date: 20231018
  Transmission Date: 20240109
  Serious: No
  Sender: FDA-Public Use
  Company Number: US-OPELLA-2023OHG001029

PATIENT
  Sex: Male

DRUGS (1)
  1. DULCOLAX SOFT CHEWS BLACK CHERRY [Suspect]
     Active Substance: MAGNESIUM HYDROXIDE
     Route: 065

REACTIONS (3)
  - Product use complaint [Unknown]
  - Product quality issue [Unknown]
  - No adverse event [Unknown]
